FAERS Safety Report 7455449-X (Version None)
Quarter: 2011Q2

REPORT INFORMATION
  Report Type: 
  Country: None (occurrence: None)
  Receive Date: 20110503
  Receipt Date: 20110427
  Transmission Date: 20111010
  Serious: Yes (Other)
  Sender: FDA-Public Use
  Company Number: US-ABBOTT-11P-163-0722351-00

PATIENT
  Sex: Female
  Weight: 77.18 kg

DRUGS (9)
  1. GLYBURIDE [Concomitant]
     Indication: DIABETES MELLITUS
  2. AMLODIPINE [Concomitant]
     Indication: HYPERTENSION
  3. HUMIRA [Suspect]
     Indication: RHEUMATOID ARTHRITIS
     Route: 058
     Dates: start: 20020101
  4. JANUVIA [Concomitant]
     Indication: DIABETES MELLITUS
  5. CARVEDILOL [Concomitant]
     Indication: HYPERTENSION
  6. HYDRALAZINE HCL [Concomitant]
     Indication: HYPERTENSION
  7. SYNTHROID [Concomitant]
     Indication: HYPOTHYROIDISM
  8. METFORMIN HYDROCHLORIDE [Concomitant]
     Indication: DIABETES MELLITUS
  9. LISINOPRIL [Concomitant]
     Indication: HYPERTENSION

REACTIONS (9)
  - LIPOMA [None]
  - NIPPLE INFECTION [None]
  - HERNIA [None]
  - NIPPLE SWELLING [None]
  - MUSCULAR WEAKNESS [None]
  - BREAST CANCER STAGE III [None]
  - BREAST MASS [None]
  - SKIN DISORDER [None]
  - CHOLECYSTECTOMY [None]
